APPROVED DRUG PRODUCT: TRIAMCINOLONE ACETONIDE
Active Ingredient: TRIAMCINOLONE ACETONIDE
Strength: 0.5%
Dosage Form/Route: CREAM;TOPICAL
Application: A208763 | Product #003 | TE Code: AT
Applicant: CHARTWELL RX SCIENCES LLC
Approved: Feb 1, 2017 | RLD: No | RS: No | Type: RX